FAERS Safety Report 4530375-4 (Version None)
Quarter: 2004Q4

REPORT INFORMATION
  Report Type: 
  Country: None (occurrence: None)
  Receive Date: 20041215
  Receipt Date: 20041129
  Transmission Date: 20050328
  Serious: Yes (Life-Threatening, Hospitalization)
  Sender: FDA-Public Use
  Company Number: DSA_25465_2004

PATIENT
  Age: 62 Year
  Sex: Female

DRUGS (8)
  1. ENALAPRIL MALEATE [Suspect]
     Indication: BLOOD PRESSURE INCREASED
     Dosage: 20 MG QD PO
     Route: 048
     Dates: start: 20031101
  2. PAROXETINE [Suspect]
     Indication: DEPRESSION
     Dosage: 20 MG PO
     Route: 048
     Dates: start: 20041025
  3. BENDROFLUMETHIAZIDE [Suspect]
     Dosage: 2.5 MG Q DAY
     Dates: start: 19951101, end: 20041028
  4. AMLODIPINE BESYLATE [Concomitant]
  5. CHOLINE SALICYLATE [Concomitant]
  6. DIAZEPAM [Concomitant]
  7. MEBEVERINE HCL [Concomitant]
  8. TERBUTALINE SULFATE [Concomitant]

REACTIONS (4)
  - CONFUSIONAL STATE [None]
  - HYPONATRAEMIA [None]
  - NERVOUS SYSTEM DISORDER [None]
  - URINE OUTPUT DECREASED [None]
